FAERS Safety Report 9298707 (Version 2)
Quarter: 2013Q2

REPORT INFORMATION
  Report Type: Spontaneous
  Country: BR (occurrence: None)
  Receive Date: 20130515
  Receipt Date: 20130610
  Transmission Date: 20140414
  Serious: Yes (Other)
  Sender: FDA-Public Use
  Company Number: VAL_02513_2013

PATIENT
  Sex: Female

DRUGS (3)
  1. SELOZOK [Suspect]
     Indication: PRODUCT USED FOR UNKNOWN INDICATION
     Dosage: IN THE MORNING
  2. DIOVAN [Suspect]
     Indication: HYPERTENSION
     Dosage: QHS (DAILY AT NIGHT)
     Route: 048
  3. NATRILIX [Suspect]
     Indication: PRODUCT USED FOR UNKNOWN INDICATION
     Dosage: 3X WEEK, ON MONDAYS, WEDNESDAYS AND FRIDAYS

REACTIONS (6)
  - Blood pressure fluctuation [None]
  - Arrhythmia [None]
  - Dizziness [None]
  - Headache [None]
  - Neck pain [None]
  - Fear [None]
